FAERS Safety Report 21676308 (Version 1)
Quarter: 2022Q4

REPORT INFORMATION
  Report Type: Spontaneous
  Country: US (occurrence: US)
  Receive Date: 20221202
  Receipt Date: 20221202
  Transmission Date: 20230113
  Serious: Yes (Death, Life-Threatening, Hospitalization)
  Sender: FDA-Public Use
  Company Number: US-MACLEODS PHARMA EU LTD-MAC2022038480

PATIENT

DRUGS (1)
  1. ESCITALOPRAM [Suspect]
     Active Substance: ESCITALOPRAM OXALATE
     Indication: Depression
     Dosage: 10 MILLIGRAM, QD (DAILY)
     Route: 065

REACTIONS (3)
  - Reversible cerebral vasoconstriction syndrome [Fatal]
  - Serotonin syndrome [Fatal]
  - Coma [Fatal]
